FAERS Safety Report 7297713-3 (Version None)
Quarter: 2011Q1

REPORT INFORMATION
  Report Type: 
  Country: None (occurrence: None)
  Receive Date: 20110217
  Receipt Date: 20110209
  Transmission Date: 20110831
  Serious: Yes (Hospitalization, Other)
  Sender: FDA-Public Use
  Company Number: US-ASTRAZENECA-2007UW04506

PATIENT
  Age: 56 Year
  Sex: Male
  Weight: 104.3 kg

DRUGS (5)
  1. SEROQUEL [Suspect]
     Indication: SCHIZOPHRENIA
     Dosage: 200 MG-800 MG
     Route: 048
     Dates: start: 20040528, end: 20070101
  2. DEPAKOTE ER [Concomitant]
     Dosage: 250 PLUS 1000MG
  3. SEROQUEL [Suspect]
     Indication: DEPRESSION
     Dosage: 200 MG-800 MG
     Route: 048
     Dates: start: 20040528, end: 20070101
  4. SEROQUEL [Suspect]
     Indication: BIPOLAR DISORDER
     Dosage: 200 MG-800 MG
     Route: 048
     Dates: start: 20040528, end: 20070101
  5. ZOLOFT [Concomitant]
     Dosage: 50 MG 1.5 TABS

REACTIONS (3)
  - TYPE 2 DIABETES MELLITUS [None]
  - BLINDNESS [None]
  - OBESITY [None]
